FAERS Safety Report 8211424-9 (Version None)
Quarter: 2012Q1

REPORT INFORMATION
  Report Type: 
  Country: None (occurrence: None)
  Receive Date: 20120315
  Receipt Date: 20120312
  Transmission Date: 20120608
  Serious: Yes (Death)
  Sender: FDA-Public Use
  Company Number: CA-PFIZER INC-2012065971

PATIENT
  Age: 64 Year
  Sex: Male

DRUGS (2)
  1. AXITINIB [Suspect]
     Dosage: 7 MG, 2X/DAY
     Dates: start: 20111220
  2. AXITINIB [Suspect]
     Dosage: 5 MG, 2X/DAY
     Dates: start: 20111202, end: 20111219

REACTIONS (1)
  - DEATH [None]
